FAERS Safety Report 10059230 (Version 1)
Quarter: 2014Q2

REPORT INFORMATION
  Report Type: Spontaneous
  Country: IT (occurrence: IT)
  Receive Date: 20140404
  Receipt Date: 20140404
  Transmission Date: 20141212
  Serious: Yes (Hospitalization)
  Sender: FDA-Public Use
  Company Number: PHHY2014IT040425

PATIENT
  Age: 92 Year
  Sex: Female

DRUGS (3)
  1. ACETYLSALICYLIC ACID [Suspect]
     Dates: start: 20130601, end: 20140104
  2. PLAVIX [Suspect]
     Dates: start: 20130601, end: 20140104
  3. VITAMIN K [Suspect]

REACTIONS (1)
  - Haematemesis [Unknown]
